FAERS Safety Report 20222591 (Version 2)
Quarter: 2021Q4

REPORT INFORMATION
  Report Type: Report from Study
  Country: IN (occurrence: IN)
  Receive Date: 20211223
  Receipt Date: 20211227
  Transmission Date: 20220303
  Serious: Yes (Death, Other)
  Sender: FDA-Public Use
  Company Number: IN-ROCHE-2168602

PATIENT
  Age: 52 Year
  Sex: Female

DRUGS (3)
  1. ERLOTINIB [Suspect]
     Active Substance: ERLOTINIB
     Indication: Non-small cell lung cancer
     Route: 048
     Dates: start: 20180217
  2. AVASTIN [Suspect]
     Active Substance: BEVACIZUMAB
     Indication: Lung neoplasm malignant
     Route: 042
  3. AVASTIN [Suspect]
     Active Substance: BEVACIZUMAB
     Dosage: 500 MG, OTHER (21 DAYS)
     Route: 042
     Dates: start: 201601, end: 201609

REACTIONS (7)
  - Death [Fatal]
  - Metabolic disorder [Unknown]
  - Dyspnoea [Recovering/Resolving]
  - Asthenia [Recovering/Resolving]
  - Restlessness [Unknown]
  - Infection [Unknown]
  - Drug ineffective [Unknown]

NARRATIVE: CASE EVENT DATE: 20160101
